FAERS Safety Report 5854743-3 (Version None)
Quarter: 2008Q3

REPORT INFORMATION
  Report Type: 
  Country: None (occurrence: None)
  Receive Date: 20080822
  Receipt Date: 20080108
  Transmission Date: 20090109
  Serious: No
  Sender: FDA-Public Use
  Company Number: US-ABBOTT-08P-163-0432792-00

PATIENT
  Sex: Female
  Weight: 65.83 kg

DRUGS (4)
  1. SYNTHROID [Suspect]
     Indication: HORMONE REPLACEMENT THERAPY
     Route: 048
     Dates: start: 20000101, end: 20071102
  2. SYNTHROID [Suspect]
     Dosage: NEW BATCH OF SYNTHROID
     Route: 048
     Dates: start: 20071102, end: 20071230
  3. SYNTHROID [Suspect]
     Dosage: NEW BATCH OF SYNTHROID
     Route: 048
     Dates: start: 20071230
  4. ESOMEPRAZOLE MAGNESIUM [Concomitant]
     Indication: GASTROOESOPHAGEAL REFLUX DISEASE
     Route: 048
     Dates: start: 20020101

REACTIONS (3)
  - DIZZINESS [None]
  - GENERAL PHYSICAL HEALTH DETERIORATION [None]
  - LETHARGY [None]
